FAERS Safety Report 9246085 (Version 1)
Quarter: 2013Q2

REPORT INFORMATION
  Report Type: Spontaneous
  Country: DK (occurrence: DK)
  Receive Date: 20130422
  Receipt Date: 20130422
  Transmission Date: 20140414
  Serious: Yes (Disabling)
  Sender: FDA-Public Use
  Company Number: DK-PFIZER INC-2013119834

PATIENT
  Age: 59 Year
  Sex: Male
  Weight: 73 kg

DRUGS (1)
  1. ZITROMAX [Suspect]
     Indication: ERYSIPELAS
     Dosage: 500 MG, 1X/DAY
     Route: 048
     Dates: start: 20130401, end: 20130402

REACTIONS (2)
  - Oral papule [Not Recovered/Not Resolved]
  - Rash papular [Not Recovered/Not Resolved]
